FAERS Safety Report 14782320 (Version 1)
Quarter: 2018Q2

REPORT INFORMATION
  Report Type: Spontaneous
  Country: FR (occurrence: FR)
  Receive Date: 20180420
  Receipt Date: 20180420
  Transmission Date: 20180711
  Serious: Yes (Other)
  Sender: FDA-Public Use
  Company Number: FR-MERCK KGAA-2046119

PATIENT
  Age: 28 Year
  Sex: Female

DRUGS (1)
  1. NOVOTHYROX [Suspect]
     Active Substance: LEVOTHYROXINE SODIUM
     Indication: THYROIDECTOMY

REACTIONS (26)
  - Skin exfoliation [None]
  - Disturbance in attention [None]
  - Insomnia [None]
  - Myalgia [None]
  - Amnesia [None]
  - Discomfort [None]
  - Asthenia [None]
  - Fear [None]
  - Blood thyroid stimulating hormone increased [None]
  - Alopecia [None]
  - Arthralgia [None]
  - Mobility decreased [None]
  - Eye pain [None]
  - Depression [None]
  - Vulvovaginal dryness [None]
  - Libido decreased [None]
  - Nausea [None]
  - Headache [None]
  - Asphyxia [None]
  - Loss of personal independence in daily activities [None]
  - Irritability [None]
  - Mood altered [None]
  - Fatigue [None]
  - Dizziness [None]
  - Palpitations [None]
  - Stress [None]

NARRATIVE: CASE EVENT DATE: 20170913
